FAERS Safety Report 23665770 (Version 1)
Quarter: 2024Q1

REPORT INFORMATION
  Report Type: Report from Study
  Country: US (occurrence: US)
  Receive Date: 20240323
  Receipt Date: 20240323
  Transmission Date: 20240410
  Serious: Yes (Hospitalization, Other)
  Sender: FDA-Public Use
  Company Number: US-ABBVIE-5685234

PATIENT
  Sex: Female

DRUGS (2)
  1. HUMIRA [Suspect]
     Active Substance: ADALIMUMAB
     Indication: Crohn^s disease
     Dosage: FORM STRENGTH 40 MG?CITRATE FREE
     Route: 058
     Dates: start: 2012
  2. STELARA [Concomitant]
     Active Substance: USTEKINUMAB
     Indication: Product used for unknown indication

REACTIONS (6)
  - Adverse food reaction [Recovered/Resolved with Sequelae]
  - Hepatic enzyme increased [Recovered/Resolved]
  - Arthralgia [Not Recovered/Not Resolved]
  - Therapeutic product effect decreased [Recovered/Resolved]
  - Post procedural haemorrhage [Recovered/Resolved]
  - Ileostomy [Recovered/Resolved]

NARRATIVE: CASE EVENT DATE: 20200101
